FAERS Safety Report 7133076-1 (Version None)
Quarter: 2010Q4

REPORT INFORMATION
  Report Type: 
  Country: None (occurrence: None)
  Receive Date: 20101202
  Receipt Date: 20101125
  Transmission Date: 20110411
  Serious: Yes (Other)
  Sender: FDA-Public Use
  Company Number: B0684413A

PATIENT
  Age: 55 Year
  Sex: Female

DRUGS (1)
  1. FLIXONASE [Suspect]
     Indication: RHINITIS
     Route: 055

REACTIONS (5)
  - CHEST DISCOMFORT [None]
  - CONVULSION [None]
  - MOVEMENT DISORDER [None]
  - PRODUCT QUALITY ISSUE [None]
  - TREMOR [None]
